FAERS Safety Report 19145764 (Version 1)
Quarter: 2021Q2

REPORT INFORMATION
  Report Type: Spontaneous
  Country: US (occurrence: US)
  Receive Date: 20210416
  Receipt Date: 20210416
  Transmission Date: 20210717
  Serious: Yes (Hospitalization, Other)
  Sender: FDA-Public Use
  Company Number: US-CLOVIS ONCOLOGY-CLO-2021-000614

PATIENT
  Sex: Male

DRUGS (2)
  1. RUBRACA [Suspect]
     Active Substance: RUCAPARIB CAMSYLATE
     Indication: PROSTATE CANCER METASTATIC
     Dosage: 600 MILLIGRAM, BID
     Route: 048
     Dates: start: 20201221, end: 20210206
  2. RUBRACA [Suspect]
     Active Substance: RUCAPARIB CAMSYLATE
     Dosage: 300 MG, BID
     Route: 048
     Dates: start: 202103, end: 20210409

REACTIONS (12)
  - Pharyngeal disorder [Unknown]
  - Pleural effusion [Unknown]
  - Dry throat [Not Recovered/Not Resolved]
  - Fall [Unknown]
  - Neutrophil count decreased [Unknown]
  - Red blood cell count decreased [Unknown]
  - Dysphagia [Recovering/Resolving]
  - Swelling [Unknown]
  - White blood cell count decreased [Unknown]
  - Head injury [Unknown]
  - Blood calcium decreased [Unknown]
  - Sialoadenitis [Unknown]

NARRATIVE: CASE EVENT DATE: 2021
